FAERS Safety Report 23657667 (Version 1)
Quarter: 2024Q1

REPORT INFORMATION
  Report Type: Spontaneous
  Country: TN (occurrence: TN)
  Receive Date: 20240321
  Receipt Date: 20240321
  Transmission Date: 20240410
  Serious: Yes (Other)
  Sender: FDA-Public Use
  Company Number: TN-TEYRO-2024-TY-000058

PATIENT
  Age: 84 Year
  Sex: Male

DRUGS (5)
  1. GEMCITABINE [Suspect]
     Active Substance: GEMCITABINE
     Indication: Leiomyosarcoma
     Dosage: INDUCTION CHEMOTHERAPY: 3 COURSES
     Route: 065
     Dates: start: 202107, end: 202109
  2. GEMCITABINE [Suspect]
     Active Substance: GEMCITABINE
     Indication: Prostate cancer stage III
  3. GEMCITABINE [Suspect]
     Active Substance: GEMCITABINE
     Indication: Leiomyosarcoma
  4. DACARBAZINE [Suspect]
     Active Substance: DACARBAZINE
     Indication: Leiomyosarcoma
     Dosage: UNK
     Route: 065
  5. DACARBAZINE [Suspect]
     Active Substance: DACARBAZINE
     Indication: Leiomyosarcoma

REACTIONS (2)
  - Neoplasm progression [Unknown]
  - Off label use [Unknown]
